FAERS Safety Report 15061664 (Version 1)
Quarter: 2018Q2

REPORT INFORMATION
  Report Type: Spontaneous
  Country: BR (occurrence: BR)
  Receive Date: 20180625
  Receipt Date: 20180625
  Transmission Date: 20180711
  Serious: Yes (Hospitalization)
  Sender: FDA-Public Use
  Company Number: BR-PURDUE PHARMA-GBR-2018-0056931

PATIENT
  Age: 78 Year
  Sex: Female

DRUGS (2)
  1. RESTIVA [Suspect]
     Active Substance: BUPRENORPHINE
     Indication: PAIN
     Dosage: 2 PATCH, WEEKLY [1 PATCH 10 MG AND ANOTHER OF 5 MG]
     Route: 062
  2. RESTIVA [Suspect]
     Active Substance: BUPRENORPHINE
     Dosage: 10 MCG, Q1H [1 PATCH 10 MG FOR WEEK]
     Route: 062

REACTIONS (4)
  - Gastric disorder [Unknown]
  - Reflux gastritis [Unknown]
  - Weight fluctuation [Unknown]
  - Eating disorder [Unknown]
